FAERS Safety Report 21815156 (Version 2)
Quarter: 2023Q1

REPORT INFORMATION
  Report Type: Spontaneous
  Country: US (occurrence: None)
  Receive Date: 20230104
  Receipt Date: 20230210
  Transmission Date: 20230417
  Serious: No
  Sender: FDA-Public Use
  Company Number: 2022A415859

PATIENT
  Age: 72 Year
  Sex: Male
  Weight: 98.9 kg

DRUGS (1)
  1. FASENRA [Suspect]
     Active Substance: BENRALIZUMAB
     Indication: Asthma
     Dosage: 30MG/ML EVERY EIGHT WEEKS
     Route: 058
     Dates: start: 202207

REACTIONS (2)
  - Eosinophil count abnormal [Unknown]
  - Product use issue [Unknown]

NARRATIVE: CASE EVENT DATE: 20220101
